FAERS Safety Report 5512941-2 (Version None)
Quarter: 2007Q4

REPORT INFORMATION
  Report Type: 
  Country: None (occurrence: None)
  Receive Date: 20071112
  Receipt Date: 20071029
  Transmission Date: 20080405
  Serious: Yes (Other)
  Sender: FDA-Public Use
  Company Number: GB-BRISTOL-MYERS SQUIBB COMPANY-13977400

PATIENT
  Age: 52 Year
  Sex: Female

DRUGS (8)
  1. CYCLOPHOSPHAMIDE [Suspect]
     Indication: LYMPHOMA
     Route: 042
  2. DOXORUBICIN HCL [Interacting]
     Indication: LYMPHOMA
     Route: 042
  3. VINCRISTINE SULFATE [Interacting]
     Indication: LYMPHOMA
     Route: 042
  4. GRANISETRON [Interacting]
     Indication: LYMPHOMA
     Route: 042
  5. FLUDARABINE PHOSPHATE [Interacting]
     Indication: CHRONIC LYMPHOCYTIC LEUKAEMIA
  6. PREDNISONE [Interacting]
     Indication: LYMPHOMA
     Route: 042
  7. TEGRETOL [Interacting]
     Indication: EPILEPSY
     Route: 048
  8. ZOFRAN [Interacting]

REACTIONS (2)
  - DRUG INTERACTION [None]
  - NAUSEA [None]
